FAERS Safety Report 4931279-5 (Version None)
Quarter: 2006Q1

REPORT INFORMATION
  Report Type: 
  Country: None (occurrence: None)
  Receive Date: 20060227
  Receipt Date: 20060214
  Transmission Date: 20060701
  Serious: Yes (Hospitalization)
  Sender: FDA-Public Use
  Company Number: 2006S1000038

PATIENT

DRUGS (1)
  1. CUBICIN [Suspect]
     Indication: STAPHYLOCOCCAL BACTERAEMIA
     Dosage: IV
     Route: 042

REACTIONS (3)
  - DRUG RESISTANCE [None]
  - EXTRADURAL ABSCESS [None]
  - FALL [None]
